FAERS Safety Report 7883530-X (Version None)
Quarter: 2011Q4

REPORT INFORMATION
  Report Type: 
  Country: None (occurrence: None)
  Receive Date: 20111102
  Receipt Date: 20111026
  Transmission Date: 20120403
  Serious: Yes (Hospitalization)
  Sender: FDA-Public Use
  Company Number: DE-B.I. PHARMACEUTICALS,INC./RIDGEFIELD-2011-DE-06060DE

PATIENT
  Sex: Female

DRUGS (2)
  1. DICLOFENAC POTASSIUM [Suspect]
  2. PRADAXA [Suspect]
     Dosage: 1X8 CAPSULES ONCE

REACTIONS (5)
  - SUICIDE ATTEMPT [None]
  - ACTIVATED PARTIAL THROMBOPLASTIN TIME PROLONGED [None]
  - HAEMATEMESIS [None]
  - PROTHROMBIN TIME PROLONGED [None]
  - GASTROINTESTINAL HAEMORRHAGE [None]
